FAERS Safety Report 9111032 (Version 1)
Quarter: 2013Q1

REPORT INFORMATION
  Report Type: Spontaneous
  Country: US (occurrence: US)
  Receive Date: 20130219
  Receipt Date: 20130219
  Transmission Date: 20140127
  Serious: No
  Sender: FDA-Public Use
  Company Number: US-BRISTOL-MYERS SQUIBB COMPANY-16863086

PATIENT
  Age: 54 Year
  Sex: Female

DRUGS (2)
  1. ABATACEPT SUBQ INJECTION 125MG/ML [Suspect]
     Indication: RHEUMATOID ARTHRITIS
     Dosage: LAST INJ 11AUG12. PREVIOUSLY HAD ORENCIA IV BUT SWITCHED TO SUBQ IN MAY2012
     Route: 058
     Dates: start: 201205
  2. ORENCIA [Suspect]
     Route: 042
     Dates: end: 201205

REACTIONS (2)
  - Rheumatoid arthritis [Unknown]
  - Alopecia [Recovered/Resolved]
